FAERS Safety Report 6878594-6 (Version None)
Quarter: 2010Q3

REPORT INFORMATION
  Report Type: 
  Country: None (occurrence: None)
  Receive Date: 20100728
  Receipt Date: 20100721
  Transmission Date: 20110219
  Serious: Yes (Hospitalization)
  Sender: FDA-Public Use
  Company Number: A0818288A

PATIENT
  Age: 43 Year
  Sex: Male

DRUGS (2)
  1. AVANDIA [Suspect]
     Indication: DIABETES MELLITUS
     Dosage: 4MG TWICE PER DAY
     Route: 048
  2. AVANDARYL [Suspect]
     Route: 048

REACTIONS (8)
  - BONE PAIN [None]
  - CARDIAC DISORDER [None]
  - CARDIAC FAILURE CONGESTIVE [None]
  - HEPATIC FAILURE [None]
  - HYPERTENSION [None]
  - MACULAR OEDEMA [None]
  - RENAL DISORDER [None]
  - RESPIRATORY DISORDER [None]
